FAERS Safety Report 15150993 (Version 1)
Quarter: 2018Q3

REPORT INFORMATION
  Report Type: Spontaneous
  Country: HU (occurrence: HU)
  Receive Date: 20180716
  Receipt Date: 20180716
  Transmission Date: 20181010
  Serious: Yes (Hospitalization)
  Sender: FDA-Public Use
  Company Number: PHHY2018HU045955

PATIENT
  Age: 18 Year
  Sex: Female

DRUGS (4)
  1. AMOXICILLIN+CLAVULANATE [Suspect]
     Active Substance: AMOXICILLIN\CLAVULANATE POTASSIUM
     Indication: TOXIC SHOCK SYNDROME
     Dosage: UNK
     Route: 065
  2. CLINDAMYCIN. [Concomitant]
     Active Substance: CLINDAMYCIN
     Indication: SEPSIS
     Dosage: UNK
     Route: 065
  3. CEFTRIAXON [Concomitant]
     Active Substance: CEFTRIAXONE
     Indication: SEPSIS
     Dosage: UNK
     Route: 065
  4. NORADRENALIN [Concomitant]
     Active Substance: NOREPINEPHRINE\NOREPINEPHRINE BITARTRATE
     Indication: PRODUCT USED FOR UNKNOWN INDICATION
     Dosage: 0.1 UG/KG, UNK
     Route: 065

REACTIONS (2)
  - Blood count abnormal [Unknown]
  - Condition aggravated [Recovered/Resolved]
